FAERS Safety Report 5509827-6 (Version None)
Quarter: 2007Q4

REPORT INFORMATION
  Report Type: 
  Country: None (occurrence: None)
  Receive Date: 20071108
  Receipt Date: 20071027
  Transmission Date: 20080405
  Serious: Yes (Life-Threatening, Hospitalization, Other)
  Sender: FDA-Public Use
  Company Number: PT-WYE-G00538807

PATIENT
  Sex: Male

DRUGS (16)
  1. RAPAMUNE [Suspect]
     Indication: RENAL TRANSPLANT
     Dosage: UNKNOWN
     Dates: start: 20041101
  2. RAPAMUNE [Suspect]
     Dosage: UNKNOWN
     Dates: start: 20050101
  3. MYCOPHENOLATE MOFETIL [Concomitant]
     Indication: RENAL TRANSPLANT
     Dosage: UNKNOWN
     Dates: start: 20010901, end: 20041101
  4. MYCOPHENOLATE MOFETIL [Concomitant]
     Dosage: UNKNOWN
     Dates: start: 20050101
  5. CYCLOSPORINE [Concomitant]
     Indication: RENAL TRANSPLANT
     Dosage: DOSE REDUCED TO HALF
     Dates: start: 20010901, end: 20041101
  6. CYCLOSPORINE [Concomitant]
     Dosage: UNKNOWN
     Dates: start: 20041101, end: 20041101
  7. PREDNISONE [Concomitant]
     Indication: RENAL TRANSPLANT
     Dosage: UNKNOWN
     Dates: start: 20010901, end: 20050101
  8. VINCRISTINE [Concomitant]
     Indication: BURKITT'S LYMPHOMA
  9. DOXORUBICIN HCL [Concomitant]
     Indication: BURKITT'S LYMPHOMA
  10. METHOTREXATE [Suspect]
     Indication: BURKITT'S LYMPHOMA
  11. RITUXIMAB [Concomitant]
     Indication: BURKITT'S LYMPHOMA
  12. CYTARABINE [Concomitant]
     Indication: BURKITT'S LYMPHOMA
  13. HYDROCORTISONE [Concomitant]
     Indication: BURKITT'S LYMPHOMA
  14. PREDNISONE [Concomitant]
     Indication: BURKITT'S LYMPHOMA
  15. ALLOPURINOL [Concomitant]
     Dosage: UNKNOWN
     Dates: start: 20041101
  16. CYCLOPHOSPHAMIDE [Concomitant]
     Indication: BURKITT'S LYMPHOMA

REACTIONS (18)
  - ANAEMIA [None]
  - BONE MARROW FAILURE [None]
  - BRONCHOPULMONARY ASPERGILLOSIS [None]
  - DIZZINESS [None]
  - ENDOCARDITIS [None]
  - ENTEROBACTER INFECTION [None]
  - ENTEROCOCCAL INFECTION [None]
  - FEBRILE NEUTROPENIA [None]
  - HYPERHIDROSIS [None]
  - LEUKOCYTOSIS [None]
  - MUCOSAL INFLAMMATION [None]
  - PAIN [None]
  - PERICARDITIS [None]
  - PNEUMONITIS [None]
  - PYREXIA [None]
  - SEPSIS [None]
  - THROMBOCYTOPENIA [None]
  - TUMOUR LYSIS SYNDROME [None]
